FAERS Safety Report 9132696 (Version 1)
Quarter: 2013Q1

REPORT INFORMATION
  Report Type: Spontaneous
  Country: IT (occurrence: IT)
  Receive Date: 20130128
  Receipt Date: 20130128
  Transmission Date: 20140127
  Serious: Yes (Other)
  Sender: FDA-Public Use
  Company Number: IT-009507513-1301ITA012352

PATIENT
  Age: 90 Year
  Sex: Female

DRUGS (4)
  1. MIRTAZAPINE [Suspect]
     Dosage: 30 MG, QD
     Route: 048
     Dates: start: 20111208
  2. TRITTICO [Suspect]
     Dosage: 75 MG, QD
     Route: 048
     Dates: start: 20111208
  3. STILNOX [Suspect]
     Dosage: 10 MG, QD
     Route: 048
     Dates: start: 20111205
  4. LORAZEPAM [Suspect]
     Dosage: 2.5 MG, PRN
     Route: 048
     Dates: start: 20111208, end: 20121207

REACTIONS (2)
  - Confusional state [Recovering/Resolving]
  - Psychomotor hyperactivity [Recovering/Resolving]
